FAERS Safety Report 5464483-0 (Version None)
Quarter: 2007Q3

REPORT INFORMATION
  Report Type: 
  Country: None (occurrence: None)
  Receive Date: 20070921
  Receipt Date: 20070917
  Transmission Date: 20080115
  Serious: Yes (Hospitalization)
  Sender: FDA-Public Use
  Company Number: US-SANOFI-SYNTHELABO-F03200700177

PATIENT
  Age: 663 Month
  Sex: Female

DRUGS (7)
  1. PROTONIX [Suspect]
     Indication: DRUG USE FOR UNKNOWN INDICATION
     Dosage: UNK
     Route: 065
  2. MARINOL [Suspect]
     Indication: DRUG USE FOR UNKNOWN INDICATION
     Dosage: UNK
     Route: 048
  3. EMEND [Suspect]
     Indication: DRUG USE FOR UNKNOWN INDICATION
     Dosage: UNK
     Route: 048
  4. FLUOROURACIL [Suspect]
     Indication: COLON CANCER
     Dosage: 400 MG/M2 (2790 MG)
     Route: 042
     Dates: start: 20070808, end: 20070808
  5. LEUCOVORIN CALCIUM [Suspect]
     Indication: COLON CANCER
     Dosage: 400 MG/M2 (744 MG)
     Route: 042
     Dates: start: 20070808, end: 20070808
  6. CETUXIMAB [Suspect]
     Indication: COLON CANCER
     Dosage: 400 MG/M2 (279 MG)
     Route: 042
     Dates: start: 20070808, end: 20070808
  7. OXALIPLATIN [Suspect]
     Indication: COLON CANCER
     Dosage: 85 MG/M2 (74 MG)
     Route: 042
     Dates: start: 20070808, end: 20070808

REACTIONS (2)
  - INFECTION [None]
  - URETERIC OBSTRUCTION [None]
